FAERS Safety Report 21458371 (Version 5)
Quarter: 2023Q2

REPORT INFORMATION
  Report Type: Spontaneous
  Country: IN (occurrence: IN)
  Receive Date: 20221014
  Receipt Date: 20230424
  Transmission Date: 20230721
  Serious: Yes (Other)
  Sender: FDA-Public Use
  Company Number: IN-PFIZER INC-PV202200079952

PATIENT
  Age: 68 Year
  Sex: Female

DRUGS (1)
  1. AROMASIN [Suspect]
     Active Substance: EXEMESTANE
     Dosage: 25 MG, 1X/DAY
     Route: 048
     Dates: start: 20220526

REACTIONS (8)
  - Angiomyolipoma [Unknown]
  - Urinoma [Unknown]
  - Posterior capsule opacification [Unknown]
  - Blood pressure increased [Unknown]
  - Neoplasm progression [Unknown]
  - Renal cyst [Unknown]
  - Abdominal pain [Unknown]
  - Thyroid calcification [Unknown]

NARRATIVE: CASE EVENT DATE: 20230213
